FAERS Safety Report 7795519-X (Version None)
Quarter: 2011Q3

REPORT INFORMATION
  Report Type: 
  Country: None (occurrence: None)
  Receive Date: 20110930
  Receipt Date: 20110916
  Transmission Date: 20111222
  Serious: Yes (Hospitalization, Other)
  Sender: FDA-Public Use
  Company Number: 2011P1008933

PATIENT
  Age: 55 Year
  Sex: Female
  Weight: 68.0396 kg

DRUGS (20)
  1. WELLBUTRIN [Concomitant]
  2. NORVASC [Concomitant]
  3. CYMBALTA [Concomitant]
  4. MS CONTIN [Suspect]
     Indication: PAIN
     Dosage: PO
     Route: 048
     Dates: start: 20070101, end: 20070101
  5. LISINOPRIL [Concomitant]
  6. HYDROCHLOROTHIAZIDE [Concomitant]
  7. CLARITIN [Concomitant]
  8. KANDA [Concomitant]
  9. FENTANYL [Suspect]
     Indication: FIBROMYALGIA
     Dosage: 1 PATCH;Q48H;TDER
     Route: 062
     Dates: start: 20070101
  10. FENTANYL [Suspect]
     Indication: SCIATICA
     Dosage: 1 PATCH;Q48H;TDER
     Route: 062
     Dates: start: 20070101
  11. FENTANYL [Suspect]
     Indication: PAIN IN EXTREMITY
     Dosage: 1 PATCH;Q48H;TDER
     Route: 062
     Dates: start: 20070101
  12. FENTANYL [Suspect]
     Indication: BACK PAIN
     Dosage: 1 PATCH;Q48H;TDER
     Route: 062
     Dates: start: 20070101
  13. FENTANYL [Suspect]
     Indication: NEUROPATHY PERIPHERAL
     Dosage: 1 PATCH;Q48H;TDER
     Route: 062
     Dates: start: 20070101
  14. FENTANYL [Suspect]
     Indication: FIBROMYALGIA
     Dosage: 1 PATCH;Q48H;TDER
     Route: 062
     Dates: start: 20070101, end: 20070101
  15. FENTANYL [Suspect]
     Indication: SCIATICA
     Dosage: 1 PATCH;Q48H;TDER
     Route: 062
     Dates: start: 20070101, end: 20070101
  16. FENTANYL [Suspect]
     Indication: PAIN IN EXTREMITY
     Dosage: 1 PATCH;Q48H;TDER
     Route: 062
     Dates: start: 20070101, end: 20070101
  17. FENTANYL [Suspect]
     Indication: BACK PAIN
     Dosage: 1 PATCH;Q48H;TDER
     Route: 062
     Dates: start: 20070101, end: 20070101
  18. FENTANYL [Suspect]
     Indication: NEUROPATHY PERIPHERAL
     Dosage: 1 PATCH;Q48H;TDER
     Route: 062
     Dates: start: 20070101, end: 20070101
  19. ZANAFLEX [Concomitant]
  20. MIRALAX [Concomitant]

REACTIONS (11)
  - DEVICE BREAKAGE [None]
  - INADEQUATE ANALGESIA [None]
  - GASTROINTESTINAL NECROSIS [None]
  - POST PROCEDURAL COMPLICATION [None]
  - URINARY TRACT INFECTION [None]
  - LACERATION [None]
  - CONSTIPATION [None]
  - GASTROINTESTINAL SOUNDS ABNORMAL [None]
  - LIMB INJURY [None]
  - APPLICATION SITE REACTION [None]
  - PRODUCT ADHESION ISSUE [None]
